FAERS Safety Report 4679737-5 (Version None)
Quarter: 2005Q2

REPORT INFORMATION
  Report Type: 
  Country: None (occurrence: None)
  Receive Date: 20050602
  Receipt Date: 20050525
  Transmission Date: 20051028
  Serious: Yes (Hospitalization)
  Sender: FDA-Public Use
  Company Number: US-ROCHE-405980

PATIENT
  Age: 58 Year
  Sex: Male

DRUGS (11)
  1. DEMADEX [Suspect]
     Dosage: SECONDARY INDICATION OF RESPIRATORY DISTRESS/^TOO MUCH FLUID^ STRENGTH WAS REPORTED AS 20MG/2CC
     Route: 042
     Dates: start: 20050524, end: 20050524
  2. ALDACTONE [Concomitant]
  3. ASPIRIN [Concomitant]
  4. DIOVAN [Concomitant]
  5. POTASSIUM CHLORIDE [Concomitant]
  6. NEURONTIN [Concomitant]
     Dosage: EVERY NIGHT (HS)
  7. NITROGLYCERIN [Concomitant]
  8. PLAVIX [Concomitant]
  9. TENORMIN [Concomitant]
  10. XOPENEX [Concomitant]
     Dosage: FOR BREATHING
  11. LIPITOR [Concomitant]
     Dosage: EVERY NIGHT (HS) THERAPY DISCONTINUED AT THE HOSPITAL

REACTIONS (1)
  - RHABDOMYOLYSIS [None]
